FAERS Safety Report 11152052 (Version 1)
Quarter: 2015Q2

REPORT INFORMATION
  Report Type: Spontaneous
  Country: US (occurrence: US)
  Receive Date: 20150601
  Receipt Date: 20150601
  Transmission Date: 20150821
  Serious: No
  Sender: FDA-Public Use
  Company Number: US-PFIZER INC-2015122894

PATIENT
  Age: 58 Year
  Sex: Female
  Weight: 75 kg

DRUGS (1)
  1. DEPO-ESTRADIOL [Suspect]
     Active Substance: ESTRADIOL CYPIONATE
     Indication: HORMONE REPLACEMENT THERAPY
     Dosage: 1 ML, MONTHLY
     Route: 030
     Dates: start: 2000

REACTIONS (3)
  - Product physical issue [Unknown]
  - Poor quality drug administered [Unknown]
  - Asthenia [Unknown]
